FAERS Safety Report 6376657-5 (Version None)
Quarter: 2009Q3

REPORT INFORMATION
  Report Type: 
  Country: None (occurrence: None)
  Receive Date: 20090925
  Receipt Date: 20090918
  Transmission Date: 20100115
  Serious: Yes (Death, Hospitalization)
  Sender: FDA-Public Use
  Company Number: BR-ROCHE-656811

PATIENT
  Sex: Female
  Weight: 89.5 kg

DRUGS (4)
  1. INTERFERON ALFA [Suspect]
     Indication: RENAL CANCER
     Dosage: DOSING AMOUNT REPORTED AS: 30 M.
     Route: 065
     Dates: start: 20090904, end: 20090911
  2. BEVACIZUMAB [Suspect]
     Indication: RENAL CANCER
     Route: 065
     Dates: start: 20090904, end: 20090911
  3. PROPRANOLOL HYDROCHLORIDE [Concomitant]
     Indication: HYPERTENSION
     Dates: start: 20040101
  4. CAPTOPRIL [Concomitant]
     Indication: HYPERTENSION
     Dates: start: 20040101

REACTIONS (5)
  - CONFUSIONAL STATE [None]
  - DISORIENTATION [None]
  - METASTASES TO MENINGES [None]
  - PAIN [None]
  - RESPIRATORY TRACT INFECTION [None]
